FAERS Safety Report 25588212 (Version 1)
Quarter: 2025Q3

REPORT INFORMATION
  Report Type: Spontaneous
  Country: BR (occurrence: BR)
  Receive Date: 20250722
  Receipt Date: 20250722
  Transmission Date: 20251021
  Serious: Yes (Death, Hospitalization, Other)
  Sender: Unknown Manufacturer
  Company Number: BR-STRIDES ARCOLAB LIMITED-2025OS000127

PATIENT
  Age: 1 Day
  Sex: Male
  Weight: 1.78 kg

DRUGS (9)
  1. AMPICILLIN [Suspect]
     Active Substance: AMPICILLIN
     Indication: Sepsis neonatal
     Route: 042
     Dates: start: 202105
  2. AMPICILLIN [Suspect]
     Active Substance: AMPICILLIN
     Indication: Bacteraemia
  3. DOPAMINE [Suspect]
     Active Substance: DOPAMINE HYDROCHLORIDE
     Indication: Haemodynamic instability
     Route: 042
     Dates: start: 202105
  4. TEICOPLANIN [Suspect]
     Active Substance: TEICOPLANIN
     Indication: Sepsis neonatal
     Route: 042
     Dates: start: 202105, end: 202105
  5. TEICOPLANIN [Suspect]
     Active Substance: TEICOPLANIN
     Indication: Bacteraemia
  6. POLYMYXIN B [Suspect]
     Active Substance: POLYMYXIN B
     Indication: Sepsis neonatal
     Route: 042
     Dates: start: 202105
  7. POLYMYXIN B [Suspect]
     Active Substance: POLYMYXIN B
     Indication: Bacteraemia
  8. AVIBACTAM SODIUM\CEFTAZIDIME [Suspect]
     Active Substance: AVIBACTAM SODIUM\CEFTAZIDIME
     Indication: Sepsis neonatal
     Route: 042
     Dates: start: 202105
  9. AVIBACTAM SODIUM\CEFTAZIDIME [Suspect]
     Active Substance: AVIBACTAM SODIUM\CEFTAZIDIME
     Indication: Bacteraemia

REACTIONS (2)
  - Condition aggravated [Fatal]
  - Drug ineffective [Fatal]

NARRATIVE: CASE EVENT DATE: 20210501
